FAERS Safety Report 5682696-X (Version None)
Quarter: 2008Q1

REPORT INFORMATION
  Report Type: 
  Country: None (occurrence: None)
  Receive Date: 20080326
  Receipt Date: 20080326
  Transmission Date: 20080703
  Serious: Yes (Life-Threatening, Hospitalization)
  Sender: FDA-Public Use
  Company Number: None

PATIENT
  Age: 39 Year
  Sex: Male

DRUGS (5)
  1. WARFARIN SODIUM [Suspect]
     Indication: DEEP VEIN THROMBOSIS
     Dosage: 2 MG/3 MG ON ALT DAYS
     Dates: start: 20080205, end: 20080213
  2. CYCLOSPORINE [Concomitant]
  3. PEPCID [Concomitant]
  4. PREDNISONE TAB [Concomitant]
  5. BACTRIM [Concomitant]

REACTIONS (6)
  - EAR HAEMORRHAGE [None]
  - EPISTAXIS [None]
  - HAEMATEMESIS [None]
  - INTERNATIONAL NORMALISED RATIO INCREASED [None]
  - MELAENA [None]
  - TREATMENT NONCOMPLIANCE [None]
